FAERS Safety Report 14441858 (Version 1)
Quarter: 2018Q1

REPORT INFORMATION
  Report Type: Spontaneous
  Country: FR (occurrence: FR)
  Receive Date: 20180125
  Receipt Date: 20180125
  Transmission Date: 20180509
  Serious: Yes (Hospitalization, Other)
  Sender: FDA-Public Use
  Company Number: PHHY2017FR199479

PATIENT
  Age: 9 Year
  Sex: Female

DRUGS (15)
  1. METHOTREXATE. [Suspect]
     Active Substance: METHOTREXATE
     Indication: ACUTE LYMPHOCYTIC LEUKAEMIA
     Dosage: 12 MG, UNK
     Route: 037
     Dates: start: 20170829
  2. CYTARABINE. [Suspect]
     Active Substance: CYTARABINE
     Indication: ACUTE LYMPHOCYTIC LEUKAEMIA
     Dosage: 83 MG, UNK
     Route: 042
     Dates: start: 20170829
  3. METHOTREXATE. [Suspect]
     Active Substance: METHOTREXATE
     Dosage: 12 MG, UNK
     Route: 037
     Dates: start: 20170927
  4. CYTARABINE. [Suspect]
     Active Substance: CYTARABINE
     Dosage: 15 MG, UNK
     Route: 037
     Dates: start: 20170927
  5. 6-MERCAPTOPURINE MONOHYDRATE [Suspect]
     Active Substance: MERCAPTOPURINE
     Indication: ACUTE LYMPHOCYTIC LEUKAEMIA
     Dosage: 66 MG, UNK
     Route: 048
     Dates: start: 20170827
  6. 6-MERCAPTOPURINE MONOHYDRATE [Suspect]
     Active Substance: MERCAPTOPURINE
     Dosage: 66 MG, UNK
     Route: 048
     Dates: start: 20171008
  7. HYDROCORTISONE. [Suspect]
     Active Substance: HYDROCORTISONE
     Indication: ACUTE LYMPHOCYTIC LEUKAEMIA
     Dosage: 15 MG, UNK
     Route: 037
     Dates: start: 20170829
  8. CYTARABINE. [Suspect]
     Active Substance: CYTARABINE
     Dosage: 83 MG, UNK
     Route: 042
     Dates: start: 20171007
  9. CYTARABINE. [Suspect]
     Active Substance: CYTARABINE
     Dosage: 15 MG, UNK
     Route: 037
     Dates: start: 20170829
  10. CYCLOPHOSPHAMIDE. [Suspect]
     Active Substance: CYCLOPHOSPHAMIDE
     Indication: ACUTE LYMPHOCYTIC LEUKAEMIA
     Dosage: 1100 MG, UNK
     Route: 042
     Dates: start: 20170827
  11. PEGASPARGASE [Suspect]
     Active Substance: PEGASPARGASE
     Dosage: 2750 IU, ONCE/SINGLE
     Route: 042
     Dates: start: 20171009
  12. VINCRISTINE [Suspect]
     Active Substance: VINCRISTINE
     Indication: ACUTE LYMPHOCYTIC LEUKAEMIA
     Dosage: 1.6 MG, UNK
     Route: 042
  13. HYDROCORTISONE. [Suspect]
     Active Substance: HYDROCORTISONE
     Dosage: 15 MG, UNK
     Route: 037
     Dates: start: 20170927
  14. CYCLOPHOSPHAMIDE. [Suspect]
     Active Substance: CYCLOPHOSPHAMIDE
     Dosage: 1100 MG, UNK
     Route: 042
     Dates: start: 20170925
  15. PEGASPARGASE [Suspect]
     Active Substance: PEGASPARGASE
     Indication: ACUTE LYMPHOCYTIC LEUKAEMIA
     Dosage: 2750 IU, ONCE/SINGLE
     Route: 042
     Dates: start: 20170911

REACTIONS (3)
  - Febrile bone marrow aplasia [Recovered/Resolved]
  - Pericardial effusion [Not Recovered/Not Resolved]
  - Cholecystitis [Not Recovered/Not Resolved]

NARRATIVE: CASE EVENT DATE: 20171016
